FAERS Safety Report 15814945 (Version 1)
Quarter: 2019Q1

REPORT INFORMATION
  Report Type: Spontaneous
  Country: FR (occurrence: FR)
  Receive Date: 20190111
  Receipt Date: 20190111
  Transmission Date: 20190417
  Serious: Yes (Hospitalization)
  Sender: FDA-Public Use
  Company Number: FR-ACCORD-101635

PATIENT
  Age: 72 Year
  Sex: Male
  Weight: 82.5 kg

DRUGS (6)
  1. CISPLATINE ACCORD [Concomitant]
     Active Substance: CISPLATIN
     Indication: PENILE CANCER
     Route: 042
     Dates: start: 20180219, end: 20180219
  2. SOLUPRED [PREDNISOLONE METASULFOBENZOATE SODIUM] [Concomitant]
     Active Substance: PREDNISOLONE SODIUM METAZOATE
     Indication: PROPHYLAXIS OF NAUSEA AND VOMITING
     Route: 048
     Dates: start: 20180219, end: 20180219
  3. TAXOTERE [Concomitant]
     Active Substance: DOCETAXEL
     Indication: PENILE CANCER
     Route: 042
     Dates: start: 20180219, end: 20180219
  4. SETOFILM [Suspect]
     Active Substance: ONDANSETRON
     Indication: PROPHYLAXIS OF NAUSEA AND VOMITING
     Route: 048
     Dates: start: 20180219, end: 20180219
  5. EMEND [Concomitant]
     Active Substance: APREPITANT
     Indication: PROPHYLAXIS OF NAUSEA AND VOMITING
     Route: 048
     Dates: start: 20180219, end: 20180219
  6. FLUOROURACIL ACCORD [Suspect]
     Active Substance: FLUOROURACIL
     Indication: PENILE CANCER
     Route: 042
     Dates: start: 20180219, end: 20180219

REACTIONS (5)
  - Hypotension [Not Recovered/Not Resolved]
  - Off label use [Unknown]
  - Rash pruritic [Recovered/Resolved]
  - Pyrexia [Recovered/Resolved]
  - Eosinophilia [Not Recovered/Not Resolved]

NARRATIVE: CASE EVENT DATE: 20180219
